FAERS Safety Report 8833841 (Version 3)
Quarter: 2012Q4

REPORT INFORMATION
  Report Type: 
  Country: US (occurrence: US)
  Receive Date: 20121011
  Receipt Date: 20121214
  Transmission Date: 20130627
  Serious: Yes (Hospitalization, Other)
  Sender: FDA-Public Use
  Company Number: US-BAYER-2012-104171

PATIENT
  Age: 50 Year
  Sex: Female
  Weight: 133.47 kg

DRUGS (2)
  1. BEYAZ [Suspect]
     Dosage: UNK
     Route: 048
     Dates: start: 20090915, end: 20120913
  2. METOPROLOL SUCCINATE [Concomitant]

REACTIONS (5)
  - Cerebral infarction [Not Recovered/Not Resolved]
  - Atrial fibrillation [None]
  - Speech disorder [Not Recovered/Not Resolved]
  - Dysarthria [Not Recovered/Not Resolved]
  - Vision blurred [Not Recovered/Not Resolved]
